FAERS Safety Report 7583513-3 (Version None)
Quarter: 2011Q2

REPORT INFORMATION
  Report Type: 
  Country: None (occurrence: None)
  Receive Date: 20110527
  Receipt Date: 20101201
  Transmission Date: 20111010
  Serious: Yes (Hospitalization, Other)
  Sender: FDA-Public Use
  Company Number: US201002003429

PATIENT
  Age: 48 Year
  Sex: Male
  Weight: 136.1 kg

DRUGS (15)
  1. PREVACID [Concomitant]
  2. IBUPROFEN [Concomitant]
  3. MORPHINE [Concomitant]
  4. EXENATIDE PEN (EXENATIDE PEN) [Concomitant]
  5. ZETIA [Concomitant]
  6. HUMULIN MIX (INSULIN HUMAN, INSULIN HUMAN INJECTION, ISOPHANE) [Concomitant]
  7. AMOXICILLIN [Concomitant]
  8. TOPROL-XL [Concomitant]
  9. ENALAPRIL MALEATE [Concomitant]
  10. HUMULIN 50/50 (INSULIN HUMAN, INSULIN ISOPHANE, HUMAN BIOSYNTHETIC) [Concomitant]
  11. LANTUS [Concomitant]
  12. BYETTA [Suspect]
     Dosage: 10 UG, 2/D, SUBCUTANEOUS
     Route: 058
     Dates: start: 20060211
  13. BYETTA [Suspect]
     Dosage: 10 UG, 2/D, SUBCUTANEOUS
     Route: 058
     Dates: start: 20060211, end: 20071101
  14. HUMALOG [Concomitant]
  15. LIPITOR [Concomitant]

REACTIONS (3)
  - BLOOD GLUCOSE ABNORMAL [None]
  - OFF LABEL USE [None]
  - PANCREATITIS ACUTE [None]
